FAERS Safety Report 4307420-4 (Version None)
Quarter: 2004Q1

REPORT INFORMATION
  Report Type: 
  Country: None (occurrence: None)
  Receive Date: 20040226
  Receipt Date: 20040217
  Transmission Date: 20041129
  Serious: Yes (Other)
  Sender: FDA-Public Use
  Company Number: 2004010821

PATIENT
  Sex: 0

DRUGS (4)
  1. AMLODIPINE [Suspect]
     Indication: ILL-DEFINED DISORDER
     Dosage: 10 MG (DAILY), ORAL
     Route: 048
  2. ALL OTHER THERAPEUTIC PRODUCTS [Suspect]
     Indication: ANGIOPLASTY
  3. BETA BLOCKING AGENTS [Concomitant]
  4. ACE INHIBITOR NOS [Concomitant]

REACTIONS (3)
  - POST PROCEDURAL COMPLICATION [None]
  - REACTION TO AZO-DYES [None]
  - RENAL FAILURE [None]
